FAERS Safety Report 9198838 (Version 2)
Quarter: 2013Q2

REPORT INFORMATION
  Report Type: Report from Study
  Country: IT (occurrence: IT)
  Receive Date: 20130329
  Receipt Date: 20130425
  Transmission Date: 20140414
  Serious: No
  Sender: FDA-Public Use
  Company Number: IT-009507513-1303ITA011926

PATIENT
  Sex: Female
  Weight: 80 kg

DRUGS (4)
  1. SYCREST [Suspect]
     Indication: BIPOLAR DISORDER
     Dosage: 5 MG, QD
     Route: 048
     Dates: start: 20121001, end: 20121001
  2. LORAZEPAM [Concomitant]
     Indication: ANXIETY
     Dosage: 1 MG, QD
     Route: 048
     Dates: start: 20121001, end: 20121227
  3. ABILIFY [Concomitant]
     Indication: DELUSION
     Dosage: 15 MG, BID
     Route: 048
     Dates: start: 20110819
  4. ABILIFY [Concomitant]
     Indication: HALLUCINATION

REACTIONS (4)
  - Feeling cold [Recovered/Resolved]
  - Dysgeusia [Recovered/Resolved]
  - Swollen tongue [Recovered/Resolved]
  - Anxiety [Recovered/Resolved]
